FAERS Safety Report 17618093 (Version 1)
Quarter: 2020Q2

REPORT INFORMATION
  Report Type: Spontaneous
  Country: US (occurrence: US)
  Receive Date: 20200402
  Receipt Date: 20200402
  Transmission Date: 20200713
  Serious: No
  Sender: FDA-Public Use
  Company Number: US-ROCHE-2394004

PATIENT
  Sex: Female

DRUGS (4)
  1. ERIVEDGE [Suspect]
     Active Substance: VISMODEGIB
     Indication: BONE CANCER
  2. ERIVEDGE [Suspect]
     Active Substance: VISMODEGIB
     Indication: SKIN CANCER
     Route: 048
     Dates: start: 20190706
  3. ERIVEDGE [Suspect]
     Active Substance: VISMODEGIB
     Indication: CHOLANGIOCARCINOMA
  4. ERIVEDGE [Suspect]
     Active Substance: VISMODEGIB
     Indication: METASTASES TO LIVER

REACTIONS (4)
  - Dysgeusia [Recovered/Resolved]
  - Muscle spasms [Recovered/Resolved]
  - Diarrhoea [Not Recovered/Not Resolved]
  - Rash [Recovered/Resolved]
